FAERS Safety Report 21944587 (Version 1)
Quarter: 2023Q1

REPORT INFORMATION
  Report Type: Spontaneous
  Country: US (occurrence: None)
  Receive Date: 20230201
  Receipt Date: 20230201
  Transmission Date: 20230418
  Serious: Yes (Other)
  Sender: FDA-Public Use
  Company Number: None

PATIENT
  Age: 68 Year
  Sex: Female
  Weight: 64.35 kg

DRUGS (9)
  1. PAXLOVID [Suspect]
     Active Substance: NIRMATRELVIR\RITONAVIR
     Indication: COVID-19
     Dosage: OTHER FREQUENCY : 30 TABLETS;?
     Route: 048
  2. ARMOUR THYROID [Concomitant]
     Active Substance: THYROID, PORCINE
  3. FLUOXETINE [Concomitant]
     Active Substance: FLUOXETINE HYDROCHLORIDE
  4. TEMAZEPAM [Concomitant]
     Active Substance: TEMAZEPAM
  5. CLONAZEPAM [Concomitant]
     Active Substance: CLONAZEPAM
  6. Butalb [Concomitant]
  7. SUMATRIPTAN [Concomitant]
     Active Substance: SUMATRIPTAN
  8. KRILL OIL [Concomitant]
     Active Substance: DIETARY SUPPLEMENT\KRILL OIL
  9. VITAMINS [Concomitant]
     Active Substance: VITAMINS

REACTIONS (2)
  - COVID-19 [None]
  - Illness [None]

NARRATIVE: CASE EVENT DATE: 20230128
